FAERS Safety Report 21227498 (Version 1)
Quarter: 2022Q3

REPORT INFORMATION
  Report Type: Report from Study
  Country: CA (occurrence: CA)
  Receive Date: 20220818
  Receipt Date: 20220818
  Transmission Date: 20221026
  Serious: Yes (Hospitalization)
  Sender: FDA-Public Use
  Company Number: CA-BAUSCH-BL-2022-014348

PATIENT
  Sex: Female

DRUGS (9)
  1. CONTRAVE [Suspect]
     Active Substance: BUPROPION HYDROCHLORIDE\NALTREXONE HYDROCHLORIDE
     Indication: Weight control
     Dosage: 90MG/8MG (FIRST MONTH)
     Route: 048
     Dates: start: 202204
  2. CONTRAVE [Suspect]
     Active Substance: BUPROPION HYDROCHLORIDE\NALTREXONE HYDROCHLORIDE
     Dosage: 90MG/8MG, 2TAB QAM, 2TAB QPM
     Route: 048
     Dates: start: 20220513, end: 20220727
  3. IRON [Suspect]
     Active Substance: IRON
     Indication: Iron deficiency
     Dosage: UNK
     Route: 065
  4. TOVIAZ [Concomitant]
     Active Substance: FESOTERODINE FUMARATE
     Indication: Incontinence
     Dosage: UNK
  5. PIROXICAM [Concomitant]
     Active Substance: PIROXICAM
     Indication: Depression
     Dosage: UNK
  6. PRAMIPEXOLE [Concomitant]
     Active Substance: PRAMIPEXOLE
     Indication: Restless legs syndrome
     Dosage: UNK
  7. MORPHINE [Concomitant]
     Active Substance: MORPHINE
     Indication: Pain
     Dosage: UNK
  8. DILAUDID [Concomitant]
     Active Substance: HYDROMORPHONE HYDROCHLORIDE
     Indication: Pain
     Dosage: UNK
  9. LYRICA [Concomitant]
     Active Substance: PREGABALIN
     Indication: Restless legs syndrome
     Dosage: UNK

REACTIONS (9)
  - Gastritis [Recovered/Resolved]
  - Sunburn [Unknown]
  - Blood iron decreased [Unknown]
  - Abdominal discomfort [Unknown]
  - Dehydration [Unknown]
  - Dry mouth [Recovered/Resolved]
  - Nausea [Recovered/Resolved]
  - Vomiting [Recovered/Resolved]
  - Balance disorder [Unknown]

NARRATIVE: CASE EVENT DATE: 20220101
